FAERS Safety Report 9832254 (Version 2)
Quarter: 2014Q2

REPORT INFORMATION
  Report Type: Spontaneous
  Country: GB (occurrence: GB)
  Receive Date: 20140121
  Receipt Date: 20140402
  Transmission Date: 20141212
  Serious: Yes (Hospitalization)
  Sender: FDA-Public Use
  Company Number: PHFR2014GB000786

PATIENT
  Age: 32 Year
  Sex: Female

DRUGS (6)
  1. CLOZARIL [Suspect]
     Dosage: UNK
     Route: 048
     Dates: start: 20131223
  2. HALOPERIDOL [Concomitant]
     Indication: SCHIZOPHRENIA
     Dosage: 10 MG, DAILY
     Route: 048
     Dates: start: 20140126, end: 20140203
  3. NITRAZEPAM [Concomitant]
     Indication: INSOMNIA
     Dosage: 10 MG, DAILY
     Route: 048
  4. CARBOCISTEINE [Concomitant]
     Indication: ASTHMA
     Dosage: 750 MG, BID
     Route: 048
  5. MONTELUKAST [Concomitant]
     Indication: ASTHMA
     Dosage: 10 MG, DAILY
     Route: 048
  6. SERETIDE [Concomitant]
     Indication: ASTHMA
     Dosage: 2 DF, BID (2 PUFF)
     Route: 055

REACTIONS (4)
  - Lung infection [Unknown]
  - Asthma [Recovered/Resolved]
  - Tachycardia [Unknown]
  - Lower respiratory tract infection [Recovered/Resolved]
